FAERS Safety Report 4754127-5 (Version None)
Quarter: 2005Q3

REPORT INFORMATION
  Report Type: 
  Country: None (occurrence: None)
  Receive Date: 20050825
  Receipt Date: 20050412
  Transmission Date: 20060218
  Serious: Yes (Other)
  Sender: FDA-Public Use
  Company Number: HQWYE120619APR05

PATIENT
  Age: 3 Year
  Sex: Female
  Weight: 14.98 kg

DRUGS (1)
  1. CHILDREN'S ADVIL [Suspect]
     Indication: PYREXIA
     Dosage: 1 TEASPOON ONCE, ORAL
     Route: 048
     Dates: start: 20050411, end: 20050411

REACTIONS (2)
  - EPISTAXIS [None]
  - SNEEZING [None]
